FAERS Safety Report 25704249 (Version 2)
Quarter: 2025Q3

REPORT INFORMATION
  Report Type: Report from Study
  Country: US (occurrence: US)
  Receive Date: 20250820
  Receipt Date: 20250822
  Transmission Date: 20251020
  Serious: No
  Sender: BOEHRINGER INGELHEIM
  Company Number: US-Komodo Health-a23aa000009bdurAAA

PATIENT
  Age: 80 Year
  Sex: Male

DRUGS (1)
  1. CYLTEZO [Suspect]
     Active Substance: ADALIMUMAB-ADBM
     Indication: Colitis ulcerative
     Dates: start: 202501

REACTIONS (3)
  - Diarrhoea [Unknown]
  - Defaecation urgency [Unknown]
  - Device malfunction [Unknown]
